FAERS Safety Report 5945980-8 (Version None)
Quarter: 2008Q4

REPORT INFORMATION
  Report Type: 
  Country: None (occurrence: None)
  Receive Date: 20081106
  Receipt Date: 20081031
  Transmission Date: 20090506
  Serious: Yes (Death)
  Sender: FDA-Public Use
  Company Number: MSTR-NO-0810S-0113

PATIENT
  Age: 70 Year
  Sex: Female

DRUGS (1)
  1. METASTRON [Suspect]
     Indication: METASTATIC PAIN
     Dosage: SINGLE DOSE, I.V.
     Route: 042
     Dates: start: 20080422, end: 20080422

REACTIONS (2)
  - BREAST CANCER FEMALE [None]
  - CONDITION AGGRAVATED [None]
